FAERS Safety Report 20516750 (Version 1)
Quarter: 2022Q1

REPORT INFORMATION
  Report Type: Spontaneous
  Country: SG (occurrence: SG)
  Receive Date: 20220225
  Receipt Date: 20220225
  Transmission Date: 20220423
  Serious: No
  Sender: FDA-Public Use
  Company Number: SG-LUPIN PHARMACEUTICALS INC.-2022-02479

PATIENT
  Age: 18 Year
  Sex: Male

DRUGS (4)
  1. DOXYCYCLINE [Suspect]
     Active Substance: DOXYCYCLINE
     Indication: Acne
     Dosage: UNK
     Route: 048
  2. DOXYCYCLINE [Suspect]
     Active Substance: DOXYCYCLINE
     Dosage: 100 MG, LATER FOR ANOTHER 4-8 WEEKS
     Route: 048
  3. RESORCINOL;SULFUR [Concomitant]
     Indication: Acne
     Dosage: UNK
     Route: 061
  4. ADAPALENE [Concomitant]
     Active Substance: ADAPALENE
     Indication: Acne
     Dosage: UNK, 0.1% CREAM EVERY ALTERNATE NIGHT, TO BE APPLIED FOR ONE WEEK
     Route: 061

REACTIONS (1)
  - Dyspepsia [Unknown]
